FAERS Safety Report 25252752 (Version 1)
Quarter: 2025Q2

REPORT INFORMATION
  Report Type: Report from Study
  Country: US (occurrence: US)
  Receive Date: 20250429
  Receipt Date: 20250429
  Transmission Date: 20250716
  Serious: Yes (Other)
  Sender: ABBVIE
  Company Number: US-ABBVIE-6247708

PATIENT
  Sex: Male

DRUGS (1)
  1. HUMIRA [Suspect]
     Active Substance: ADALIMUMAB
     Indication: Rheumatoid arthritis
     Route: 058
     Dates: start: 20170601

REACTIONS (5)
  - Thrombosis [Unknown]
  - Eye disorder [Unknown]
  - Liver disorder [Unknown]
  - Renal disorder [Unknown]
  - Gallbladder disorder [Unknown]
